FAERS Safety Report 8957070 (Version 2)
Quarter: 2014Q1

REPORT INFORMATION
  Report Type: Spontaneous
  Country: US (occurrence: US)
  Receive Date: 20121210
  Receipt Date: 20140310
  Transmission Date: 20141002
  Serious: No
  Sender: FDA-Public Use
  Company Number: US-ASTELLAS-2012US011838

PATIENT
  Age: 68 Year
  Sex: Male

DRUGS (1)
  1. XTANDI [Suspect]
     Indication: PROSTATE CANCER
     Dosage: 120 MG, UID/QD
     Route: 048
     Dates: start: 20121031

REACTIONS (4)
  - Incorrect dose administered [Unknown]
  - Dyspepsia [Unknown]
  - Balance disorder [Unknown]
  - Fatigue [Unknown]
